FAERS Safety Report 10128709 (Version 1)
Quarter: 2014Q2

REPORT INFORMATION
  Report Type: Spontaneous
  Country: US (occurrence: None)
  Receive Date: 20140423
  Receipt Date: 20140423
  Transmission Date: 20141212
  Serious: Yes (Hospitalization, Other)
  Sender: FDA-Public Use
  Company Number: 2009US000007

PATIENT
  Age: 48 Year
  Sex: Male
  Weight: 114.5 kg

DRUGS (18)
  1. PONATINIB [Suspect]
     Indication: CHRONIC MYELOID LEUKAEMIA
     Route: 048
     Dates: start: 20090128, end: 20090211
  2. PONATINIB [Suspect]
     Indication: HAEMATOLOGICAL MALIGNANCY
     Route: 048
     Dates: start: 20090128, end: 20090211
  3. HYDROXYUREA [Concomitant]
  4. MOXIFLOXACIN [Concomitant]
  5. LEVOFLOXACIN [Concomitant]
  6. ACETAMINOPHEN (ACETAMINOPHEN) [Concomitant]
  7. HYDROCODONE BITARTRATE AND ACETAMINOPHEN [Concomitant]
  8. LORAZEPAM (LORAZEPAM) [Concomitant]
  9. DOCUSATE SOD (DOCUSATE SODIUM) [Concomitant]
  10. PANTOPRAZOLE [Concomitant]
  11. SENNA (SENNA) [Concomitant]
  12. AZTREONAM (AZTREONAM) [Concomitant]
  13. VANCOMYCIN [Concomitant]
  14. CASPOFUNGIN (CASPOFUNGIN ACETATE) [Concomitant]
  15. ALLOPURINOL (ALLOPURINOL) [Concomitant]
  16. ONDANSETRON (ONDANSETRON) [Concomitant]
  17. FLUOROMETHOLON (FLUOROMETHOLON) [Concomitant]
  18. CYTARABINE (CYTARABINE) [Concomitant]

REACTIONS (5)
  - Blast crisis in myelogenous leukaemia [None]
  - Deep vein thrombosis [None]
  - Febrile neutropenia [None]
  - Staphylococcal bacteraemia [None]
  - Thrombophlebitis superficial [None]
